FAERS Safety Report 7057005-4 (Version None)
Quarter: 2010Q4

REPORT INFORMATION
  Report Type: 
  Country: None (occurrence: None)
  Receive Date: 20101022
  Receipt Date: 20101007
  Transmission Date: 20110411
  Serious: Yes (Other)
  Sender: FDA-Public Use
  Company Number: US-BAYER-200943589NA

PATIENT
  Age: 26 Year
  Sex: Female
  Weight: 59 kg

DRUGS (9)
  1. YAZ [Suspect]
     Indication: CONTRACEPTION
     Route: 048
     Dates: start: 20071101, end: 20090901
  2. MULTI-VITAMINS [Concomitant]
  3. PREDNISOLONE [Concomitant]
     Indication: SINUSITIS
     Dates: start: 20090301
  4. NEXIUM [Concomitant]
  5. ADVIL [Concomitant]
  6. CEFDINIR [Concomitant]
     Route: 048
  7. FLUTICASONE PROPIONATE [Concomitant]
     Route: 045
  8. SUDAFED 12 HOUR [Concomitant]
  9. FEXOFENADINE HCL [Concomitant]

REACTIONS (6)
  - BILIARY DYSKINESIA [None]
  - CHOLECYSTITIS CHRONIC [None]
  - DIARRHOEA [None]
  - GALLBLADDER CHOLESTEROLOSIS [None]
  - NAUSEA [None]
  - VOMITING [None]
